FAERS Safety Report 8935401 (Version 1)
Quarter: 2012Q4

REPORT INFORMATION
  Report Type: Spontaneous
  Country: US (occurrence: None)
  Receive Date: 20121127
  Receipt Date: 20121127
  Transmission Date: 20130627
  Serious: Yes (Hospitalization)
  Sender: FDA-Public Use
  Company Number: None

PATIENT
  Age: 23 Year
  Sex: Male
  Weight: 159.8 kg

DRUGS (2)
  1. IBUPROFEN [Suspect]
     Indication: PAIN
     Dosage: 800 MG TID PO
     Route: 048
     Dates: start: 20120517, end: 20120912
  2. IBUPROFEN [Suspect]
     Indication: INFLAMMATION
     Dosage: 800 MG TID PO
     Route: 048
     Dates: start: 20120517, end: 20120912

REACTIONS (2)
  - Gastric haemorrhage [None]
  - Abdominal pain [None]
